FAERS Safety Report 13194709 (Version 2)
Quarter: 2017Q1

REPORT INFORMATION
  Report Type: Spontaneous
  Country: JP (occurrence: JP)
  Receive Date: 20170207
  Receipt Date: 20170221
  Transmission Date: 20170428
  Serious: Yes (Other)
  Sender: FDA-Public Use
  Company Number: JP-009507513-1702JPN002819

PATIENT
  Age: 45 Year
  Sex: Male
  Weight: 95 kg

DRUGS (5)
  1. MEPIVACAINA CLORIDRATO [Suspect]
     Active Substance: MEPIVACAINE HYDROCHLORIDE
     Indication: CERVICAL RADICULOPATHY
     Dosage: DAILY DOSE: 0.5 ML, QD
     Route: 065
  2. DEXAMETHASONE. [Suspect]
     Active Substance: DEXAMETHASONE
     Dosage: 3.3 MG, UNK
     Route: 065
  3. DEXAMETHASONE. [Suspect]
     Active Substance: DEXAMETHASONE
     Indication: CERVICAL RADICULOPATHY
     Dosage: 1.65 MG, UNK
     Route: 065
  4. ACETAMINOPHEN (+) TRAMADOL HYDROCHLORIDE [Concomitant]
     Active Substance: ACETAMINOPHEN\TRAMADOL HYDROCHLORIDE
  5. MEPIVACAINA CLORIDRATO [Suspect]
     Active Substance: MEPIVACAINE HYDROCHLORIDE
     Dosage: 2 ML, UNK
     Route: 065

REACTIONS (3)
  - Infusion related reaction [Recovered/Resolved]
  - Off label use [Unknown]
  - Infusion related reaction [None]
